FAERS Safety Report 9865583 (Version 1)
Quarter: 2014Q1

REPORT INFORMATION
  Report Type: Spontaneous
  Country: US (occurrence: US)
  Receive Date: 20140203
  Receipt Date: 20140203
  Transmission Date: 20141002
  Serious: Yes (Hospitalization, Other)
  Sender: FDA-Public Use
  Company Number: US-AMGEN-USASP2014006882

PATIENT
  Age: 52 Year
  Sex: Female

DRUGS (3)
  1. ENBREL [Suspect]
     Indication: REITER^S SYNDROME
     Dosage: 50 MG, QWK
     Route: 065
     Dates: start: 20040812
  2. HUMIRA [Concomitant]
     Dosage: UNK
     Dates: start: 2011
  3. SIMPONI [Concomitant]
     Dosage: 50 MG, QMO
     Dates: start: 2011, end: 201312

REACTIONS (5)
  - Intervertebral disc degeneration [Recovered/Resolved]
  - Condition aggravated [Not Recovered/Not Resolved]
  - Pain in extremity [Not Recovered/Not Resolved]
  - Local swelling [Not Recovered/Not Resolved]
  - Inflammation [Not Recovered/Not Resolved]
